FAERS Safety Report 5375487-0 (Version None)
Quarter: 2007Q2

REPORT INFORMATION
  Report Type: 
  Country: None (occurrence: None)
  Receive Date: 20070629
  Receipt Date: 20070619
  Transmission Date: 20071010
  Serious: Yes (Death)
  Sender: FDA-Public Use
  Company Number: US-SHR-US-2007-019920

PATIENT
  Age: 24 Year
  Sex: Male

DRUGS (3)
  1. MAGNEVIST [Suspect]
     Dosage: UNK, 1 DOSE
     Dates: start: 20020321, end: 20020321
  2. MAGNEVIST [Suspect]
     Dosage: UNK, 1 DOSE
     Dates: start: 20040808, end: 20040808
  3. OMNISCAN [Suspect]
     Indication: NUCLEAR MAGNETIC RESONANCE IMAGING
     Dates: start: 20040201, end: 20040201

REACTIONS (2)
  - NEPHROGENIC FIBROSING DERMOPATHY [None]
  - PROGRESSIVE MASSIVE FIBROSIS [None]
